FAERS Safety Report 7005100-8 (Version None)
Quarter: 2010Q3

REPORT INFORMATION
  Report Type: 
  Country: None (occurrence: None)
  Receive Date: 20100921
  Receipt Date: 20100913
  Transmission Date: 20110219
  Serious: Yes (Other)
  Sender: FDA-Public Use
  Company Number: PHHY2009CA18940

PATIENT
  Sex: Female

DRUGS (4)
  1. SANDOSTATIN LAR [Suspect]
     Indication: NEOPLASM OF THYMUS
     Dosage: 30 MG, QMO
     Route: 030
     Dates: start: 20070712
  2. SUTENT [Suspect]
     Dosage: 25 MG, UNK
  3. HYDRALAZINE HCL [Concomitant]
     Route: 048
  4. ATACAND [Concomitant]

REACTIONS (9)
  - BLOOD PRESSURE INCREASED [None]
  - COUGH [None]
  - DYSPNOEA [None]
  - FLUSHING [None]
  - HEPATIC LESION [None]
  - HYPOTENSION [None]
  - PRURITUS [None]
  - PYREXIA [None]
  - URTICARIA [None]
